FAERS Safety Report 18600848 (Version 2)
Quarter: 2021Q1

REPORT INFORMATION
  Report Type: Spontaneous
  Country: BE (occurrence: BE)
  Receive Date: 20201210
  Receipt Date: 20210201
  Transmission Date: 20210419
  Serious: Yes (Other)
  Sender: FDA-Public Use
  Company Number: BE-PFIZER INC-2020145298

PATIENT
  Age: 64 Year
  Sex: Female

DRUGS (3)
  1. PROSTIN [Suspect]
     Active Substance: ALPROSTADIL
     Indication: PROPHYLAXIS
  2. PROSTIN [Suspect]
     Active Substance: ALPROSTADIL
     Indication: SALVAGE THERAPY
     Dosage: 0.5 MG IN A VIAL AT THE RATE OF 1.5 VIALS OR 2 VIALS PER 24 HOURS, FOR 7 DAYS
     Dates: start: 20200331, end: 20200410
  3. PROSTIN [Suspect]
     Active Substance: ALPROSTADIL
     Indication: PROMOTION OF WOUND HEALING
     Dosage: UNK
     Dates: start: 20201217, end: 20201227

REACTIONS (7)
  - Drug effective for unapproved indication [Unknown]
  - Off label use [Unknown]
  - Raynaud^s phenomenon [Recovering/Resolving]
  - Skin ulcer [Recovering/Resolving]
  - Disease recurrence [Recovering/Resolving]
  - Sensitivity to weather change [Unknown]
  - Infected skin ulcer [Unknown]

NARRATIVE: CASE EVENT DATE: 20201020
